FAERS Safety Report 8851257 (Version 1)
Quarter: 2012Q4

REPORT INFORMATION
  Report Type: 
  Country: US (occurrence: US)
  Receive Date: 20121019
  Receipt Date: 20121019
  Transmission Date: 20130627
  Serious: Yes (Hospitalization, Other)
  Sender: FDA-Public Use
  Company Number: US-PFIZER INC-2012260284

PATIENT
  Age: 23 Year
  Sex: Female
  Weight: 61 kg

DRUGS (3)
  1. NEURONTIN [Suspect]
     Indication: FIBROMYALGIA
     Dosage: 100 mg, 3x/day
     Route: 048
     Dates: start: 201207, end: 201208
  2. NEURONTIN [Suspect]
     Dosage: 300 mg, 3x/day
     Route: 048
     Dates: start: 201208, end: 201208
  3. NEURONTIN [Suspect]
     Dosage: 600 mg, 3x/day
     Route: 048
     Dates: start: 201208

REACTIONS (5)
  - Crohn^s disease [Unknown]
  - Amnesia [Not Recovered/Not Resolved]
  - Self injurious behaviour [Not Recovered/Not Resolved]
  - Somnolence [Not Recovered/Not Resolved]
  - Off label use [Unknown]
